FAERS Safety Report 5502772-1 (Version None)
Quarter: 2007Q4

REPORT INFORMATION
  Report Type: 
  Country: None (occurrence: None)
  Receive Date: 20071029
  Receipt Date: 20071018
  Transmission Date: 20080405
  Serious: Yes (Hospitalization)
  Sender: FDA-Public Use
  Company Number: MEDI-0006028

PATIENT
  Sex: Male
  Weight: 69.8539 kg

DRUGS (4)
  1. ETHYOL [Suspect]
     Indication: RADIOTHERAPY
     Dosage: 500 MG, 5 IN 1 WK, SUBCUTANEOUS
     Route: 058
     Dates: start: 20070626, end: 20070817
  2. COMPAZINE [Concomitant]
  3. ATIVAN [Concomitant]
  4. KYTRILL (GRANISETRON) [Concomitant]

REACTIONS (1)
  - STEVENS-JOHNSON SYNDROME [None]
